FAERS Safety Report 7123549-X (Version None)
Quarter: 2010Q4

REPORT INFORMATION
  Report Type: 
  Country: None (occurrence: None)
  Receive Date: 20101125
  Receipt Date: 20101122
  Transmission Date: 20110411
  Serious: Yes (Death, Life-Threatening, Hospitalization)
  Sender: FDA-Public Use
  Company Number: US-SANOFI-AVENTIS-2010SA029453

PATIENT
  Age: 59 Year
  Sex: Male

DRUGS (24)
  1. TAXOTERE [Suspect]
     Indication: PROSTATE CANCER
     Route: 042
     Dates: start: 20100226, end: 20100226
  2. BLINDED THERAPY [Suspect]
     Indication: PROSTATE CANCER
     Route: 048
     Dates: start: 20100226, end: 20100307
  3. PREDNISONE [Suspect]
     Indication: PROSTATE CANCER
     Route: 048
  4. DEXAMETHASONE [Suspect]
     Indication: PREMEDICATION
     Dosage: 12 HOURS, 3 HOURS AND 1 HOUR PRIOR TO DOCETAXEL INFUSION
     Route: 065
     Dates: start: 20100308, end: 20100312
  5. GABAPENTIN [Concomitant]
     Dates: start: 20040101
  6. LIPITOR [Concomitant]
     Dates: start: 19950101
  7. METHIMAZOLE [Concomitant]
     Dates: start: 19950101
  8. NORMAL SALINE [Concomitant]
     Dates: start: 20100228, end: 20100302
  9. OXYCODONE HCL [Concomitant]
     Route: 065
     Dates: start: 20100308, end: 20100311
  10. NITROGLYCERIN ^SLOVAKOFARMA^ [Concomitant]
     Dates: start: 20100308, end: 20100312
  11. MORPHINE [Concomitant]
     Dates: start: 20100308, end: 20100312
  12. ASPIRIN [Concomitant]
     Dates: start: 20100308, end: 20100314
  13. PANTOPRAZOLE [Concomitant]
     Dates: start: 20100308, end: 20100311
  14. OMEPRAZOLE [Concomitant]
     Dates: start: 20100312, end: 20100313
  15. METOPROLOL SUCCINATE [Concomitant]
     Dates: start: 20100308, end: 20100314
  16. DULCOLAX [Concomitant]
     Dates: start: 20100308, end: 20100308
  17. ACETAMINOPHEN [Concomitant]
     Dates: start: 20100308, end: 20100311
  18. ALBUTEROL INHALER [Concomitant]
     Route: 065
     Dates: start: 20100308, end: 20100314
  19. LACTULOSE [Concomitant]
     Dates: start: 20100308, end: 20100314
  20. LASIX [Concomitant]
     Dates: start: 20100308, end: 20100314
  21. ONDANSETRON [Concomitant]
     Dates: start: 20100309, end: 20100312
  22. LORAZEPAM [Concomitant]
     Dates: start: 20100310, end: 20100314
  23. FENTANYL [Concomitant]
     Dates: start: 20100312, end: 20100314
  24. HYDROMORPHONE HCL [Concomitant]
     Dates: start: 20100312, end: 20100314

REACTIONS (8)
  - CEREBRAL INFARCTION [None]
  - CEREBROVASCULAR ACCIDENT [None]
  - CONDITION AGGRAVATED [None]
  - CONSTIPATION [None]
  - DISSEMINATED INTRAVASCULAR COAGULATION [None]
  - MALIGNANT NEOPLASM PROGRESSION [None]
  - PROSTATE CANCER METASTATIC [None]
  - TUMOUR LYSIS SYNDROME [None]
